FAERS Safety Report 5989125-7 (Version None)
Quarter: 2008Q4

REPORT INFORMATION
  Report Type: 
  Country: None (occurrence: None)
  Receive Date: 20081210
  Receipt Date: 20081126
  Transmission Date: 20090506
  Serious: Yes (Hospitalization)
  Sender: FDA-Public Use
  Company Number: MX-WATSON-2008-07084

PATIENT
  Age: 79 Year
  Sex: Female

DRUGS (1)
  1. TIMOLOL (WATSON LABORATORIES) [Suspect]
     Indication: DRUG USE FOR UNKNOWN INDICATION
     Dosage: 0.25 %, OPTHALMIC SOLUTION
     Route: 047

REACTIONS (1)
  - ANGIOEDEMA [None]
